FAERS Safety Report 16959177 (Version 1)
Quarter: 2019Q4

REPORT INFORMATION
  Report Type: Report from Study
  Country: AR (occurrence: AR)
  Receive Date: 20191024
  Receipt Date: 20191024
  Transmission Date: 20200122
  Serious: Yes (Hospitalization, Other)
  Sender: FDA-Public Use
  Company Number: PHHY2018AR120743

PATIENT
  Age: 28 Year
  Sex: Male

DRUGS (3)
  1. GILENYA [Suspect]
     Active Substance: FINGOLIMOD HYDROCHLORIDE
     Indication: MULTIPLE SCLEROSIS
     Dosage: 0.5 MG, QD
     Route: 065
     Dates: start: 2017
  2. IBUPROFEN. [Concomitant]
     Active Substance: IBUPROFEN
     Indication: PRODUCT USED FOR UNKNOWN INDICATION
     Dosage: UNK
     Route: 065
  3. GILENYA [Suspect]
     Active Substance: FINGOLIMOD HYDROCHLORIDE
     Dosage: 0.5 MG, QD
     Route: 065
     Dates: start: 20181016, end: 201907

REACTIONS (10)
  - Gait disturbance [Recovering/Resolving]
  - Pain in extremity [Unknown]
  - Multiple sclerosis relapse [Not Recovered/Not Resolved]
  - Nausea [Unknown]
  - Back pain [Unknown]
  - Eye irritation [Unknown]
  - Abdominal discomfort [Unknown]
  - Neuralgia [Unknown]
  - Fatigue [Unknown]
  - Spinal pain [Unknown]

NARRATIVE: CASE EVENT DATE: 201809
